FAERS Safety Report 8209930-6 (Version None)
Quarter: 2012Q1

REPORT INFORMATION
  Report Type: 
  Country: None (occurrence: None)
  Receive Date: 20120314
  Receipt Date: 20111205
  Transmission Date: 20120608
  Serious: No
  Sender: FDA-Public Use
  Company Number: US-ASTRAZENECA-2011SE73720

PATIENT
  Age: 79 Year
  Sex: Male

DRUGS (4)
  1. QUINAPRIL [Concomitant]
     Indication: CORONARY ARTERY DISEASE
  2. METOPROLOL SUCCINATE [Suspect]
     Indication: BLOOD PRESSURE
     Route: 048
  3. CARVEDILOL [Concomitant]
     Indication: PULMONARY HYPERTENSION
  4. QUINAPRIL [Concomitant]
     Indication: HYPERTENSION

REACTIONS (3)
  - PULMONARY ARTERIAL HYPERTENSION [None]
  - BLOOD PRESSURE INCREASED [None]
  - DRUG DOSE OMISSION [None]
